FAERS Safety Report 6156654-5 (Version None)
Quarter: 2009Q2

REPORT INFORMATION
  Report Type: 
  Country: None (occurrence: None)
  Receive Date: 20090413
  Receipt Date: 20090327
  Transmission Date: 20091009
  Serious: Yes (Other)
  Sender: FDA-Public Use
  Company Number: 8037886

PATIENT
  Age: 40 Year
  Sex: Female
  Weight: 45 kg

DRUGS (8)
  1. KEPPRA [Suspect]
     Indication: CONVULSION
     Dosage: 500 MG 2/D PO
     Route: 048
     Dates: start: 20080601, end: 20080601
  2. KEPPRA [Suspect]
     Indication: HEAD INJURY
     Dosage: 500 MG 2/D PO
     Route: 048
     Dates: start: 20080601, end: 20080601
  3. KEPPRA [Suspect]
     Indication: CONVULSION
     Dosage: 750 MG 2/D PO
     Route: 048
     Dates: start: 20080601, end: 20081201
  4. NEXIUM [Concomitant]
  5. ZANTAC [Concomitant]
  6. ASTELIN [Concomitant]
  7. NASONEX [Concomitant]
  8. TYLENOL [Concomitant]

REACTIONS (13)
  - AMNESIA [None]
  - CENTRAL NERVOUS SYSTEM INFECTION [None]
  - CONVULSION [None]
  - EAR INFECTION [None]
  - FATIGUE [None]
  - FEELING ABNORMAL [None]
  - INSOMNIA [None]
  - LYMPHADENOPATHY [None]
  - POSTOPERATIVE WOUND COMPLICATION [None]
  - RED BLOOD CELL COUNT DECREASED [None]
  - STAPHYLOCOCCAL INFECTION [None]
  - SWELLING [None]
  - WHITE BLOOD CELL COUNT DECREASED [None]
